FAERS Safety Report 6291500-0 (Version None)
Quarter: 2009Q3

REPORT INFORMATION
  Report Type: 
  Country: None (occurrence: None)
  Receive Date: 20090730
  Receipt Date: 20090629
  Transmission Date: 20100115
  Serious: No
  Sender: FDA-Public Use
  Company Number: US-BAYER-200925781NA

PATIENT
  Age: 48 Year
  Sex: Female

DRUGS (2)
  1. ULTRAVIST 150 [Suspect]
     Indication: COMPUTERISED TOMOGRAM ABDOMEN
     Dosage: TOTAL DAILY DOSE: 119 ML
     Route: 042
     Dates: start: 20090629, end: 20090629
  2. BA EZEM [Concomitant]
     Route: 048
     Dates: start: 20090629, end: 20090629

REACTIONS (2)
  - NAUSEA [None]
  - VOMITING [None]
